FAERS Safety Report 23742412 (Version 1)
Quarter: 2024Q2

REPORT INFORMATION
  Report Type: Spontaneous
  Country: US (occurrence: US)
  Receive Date: 20240415
  Receipt Date: 20240415
  Transmission Date: 20240716
  Serious: Yes (Hospitalization)
  Sender: FDA-Public Use
  Company Number: US-MYLANLABS-2024M1033226

PATIENT
  Age: 29 Year
  Sex: Male

DRUGS (7)
  1. ETOPOSIDE [Suspect]
     Active Substance: ETOPOSIDE
     Indication: Primary mediastinal large B-cell lymphoma
     Dosage: UNK,20% INCREASE IN 2ND CYCLE; AS PART OF DA R-EPOCH REGIMEN, THERAPY COMPLETED
     Route: 065
  2. PREDNISONE [Suspect]
     Active Substance: PREDNISONE
     Indication: Primary mediastinal large B-cell lymphoma
     Dosage: UNK,AS PART OF DA R-EPOCH REGIMEN, THERAPY COMPLETED
     Route: 065
  3. DOXORUBICIN [Suspect]
     Active Substance: DOXORUBICIN
     Indication: Primary mediastinal large B-cell lymphoma
     Dosage: UNK,20% INCREASE IN 2ND CYCLE; AS PART OF DA R-EPOCH REGIMEN, THERAPY COMPLETED
     Route: 065
  4. VINCRISTINE SULFATE [Suspect]
     Active Substance: VINCRISTINE SULFATE
     Indication: Primary mediastinal large B-cell lymphoma
     Dosage: AS PART OF DA R-EPOCH REGIMEN, THERAPY COMPLETED
     Route: 065
  5. RITUXIMAB [Suspect]
     Active Substance: RITUXIMAB
     Indication: Primary mediastinal large B-cell lymphoma
     Dosage: UNK,AS PART OF DA R-EPOCH REGIMEN, THERAPY COMPLETED
     Route: 065
  6. CYCLOPHOSPHAMIDE [Suspect]
     Active Substance: CYCLOPHOSPHAMIDE
     Indication: Primary mediastinal large B-cell lymphoma
     Dosage: UNK,20% INCREASE IN 2ND CYCLE; AS PART OF DA R-EPOCH REGIMEN, THERAPY COMPLETED
     Route: 065
  7. PEGFILGRASTIM [Suspect]
     Active Substance: PEGFILGRASTIM
     Indication: Prophylaxis
     Dosage: UNK
     Route: 065

REACTIONS (2)
  - Fat embolism syndrome [Recovering/Resolving]
  - Bone marrow necrosis [Recovering/Resolving]
